FAERS Safety Report 6117802-6 (Version None)
Quarter: 2009Q1

REPORT INFORMATION
  Report Type: 
  Country: None (occurrence: None)
  Receive Date: 20090314
  Receipt Date: 20090128
  Transmission Date: 20090719
  Serious: No
  Sender: FDA-Public Use
  Company Number: US-ABBOTT-09P-163-0500680-00

PATIENT
  Sex: Male
  Weight: 68.1 kg

DRUGS (4)
  1. HUMIRA [Suspect]
     Indication: RHEUMATOID ARTHRITIS
     Dates: start: 20080101, end: 20080601
  2. HUMIRA [Suspect]
     Dates: start: 20080701, end: 20080801
  3. HUMIRA [Suspect]
     Indication: RHEUMATOID ARTHRITIS
     Dates: start: 20040101, end: 20080101
  4. METHOTREXATE [Concomitant]
     Indication: RHEUMATOID ARTHRITIS

REACTIONS (6)
  - ARTHRALGIA [None]
  - FACIAL PAIN [None]
  - FURUNCLE [None]
  - INFECTION [None]
  - INJECTION SITE PAIN [None]
  - STAPHYLOCOCCAL INFECTION [None]
